FAERS Safety Report 5756609-6 (Version None)
Quarter: 2008Q2

REPORT INFORMATION
  Report Type: 
  Country: None (occurrence: None)
  Receive Date: 20080603
  Receipt Date: 20080603
  Transmission Date: 20081010
  Serious: Yes (Death)
  Sender: FDA-Public Use
  Company Number: None

PATIENT
  Age: 65 Year
  Sex: Male
  Weight: 147 kg

DRUGS (1)
  1. HEPARIN SODIUM INJ [Suspect]
     Indication: CORONARY ARTERY BYPASS
     Dosage: 1000U/ML 10ML VIAL FOR 60,000U IV
     Route: 042
     Dates: start: 20080112, end: 20080112

REACTIONS (2)
  - PHARMACEUTICAL PRODUCT COMPLAINT [None]
  - PROCEDURAL HYPOTENSION [None]
